FAERS Safety Report 19087508 (Version 3)
Quarter: 2022Q4

REPORT INFORMATION
  Report Type: Spontaneous
  Country: US (occurrence: US)
  Receive Date: 20210402
  Receipt Date: 20221212
  Transmission Date: 20230112
  Serious: Yes (Other)
  Sender: FDA-Public Use
  Company Number: US-PFIZER INC-2021335353

PATIENT
  Age: 71 Year
  Sex: Female
  Weight: 79.38 kg

DRUGS (4)
  1. DESVENLAFAXINE SUCCINATE [Suspect]
     Active Substance: DESVENLAFAXINE SUCCINATE
     Dosage: UNK
  2. PAXIL [Suspect]
     Active Substance: PAROXETINE HYDROCHLORIDE
     Dosage: UNK
  3. CREON [Concomitant]
     Active Substance: PANCRELIPASE AMYLASE\PANCRELIPASE LIPASE\PANCRELIPASE PROTEASE
     Indication: Enzyme activity decreased
     Dosage: 24000 IU (THREE CAPSULES, THREE TIMES)
  4. VERAPAMIL [Concomitant]
     Active Substance: VERAPAMIL HYDROCHLORIDE
     Indication: Atrial fibrillation
     Dosage: 120 MG, 2X/DAY

REACTIONS (5)
  - Syncope [Unknown]
  - Drug ineffective [Unknown]
  - Reaction to excipient [Unknown]
  - Vomiting [Unknown]
  - Diarrhoea [Unknown]
